FAERS Safety Report 13887927 (Version 1)
Quarter: 2017Q3

REPORT INFORMATION
  Report Type: Spontaneous
  Country: US (occurrence: US)
  Receive Date: 20170816
  Receipt Date: 20170816
  Transmission Date: 20171127
  Serious: Yes (Hospitalization)
  Sender: FDA-Public Use
  Company Number: None

PATIENT
  Age: 86 Year
  Sex: Male
  Weight: 88 kg

DRUGS (13)
  1. CALCIUM CARBONATE. [Concomitant]
     Active Substance: CALCIUM CARBONATE
  2. DOCUSATE [Concomitant]
     Active Substance: DOCUSATE
  3. SUCRALFATE. [Concomitant]
     Active Substance: SUCRALFATE
  4. DOXEPIN [Concomitant]
     Active Substance: DOXEPIN
  5. MONTELUKAST [Concomitant]
     Active Substance: MONTELUKAST SODIUM
  6. DABIGATRAN [Suspect]
     Active Substance: DABIGATRAN
     Indication: ATRIAL FIBRILLATION
     Route: 048
  7. GABAPENTIN. [Concomitant]
     Active Substance: GABAPENTIN
  8. ONDANSETRON [Concomitant]
     Active Substance: ONDANSETRON
  9. PANTOPRAZOLE [Concomitant]
     Active Substance: PANTOPRAZOLE
  10. MIRTAZAPINE. [Concomitant]
     Active Substance: MIRTAZAPINE
  11. FISH OIL [Concomitant]
     Active Substance: FISH OIL
  12. CHOLECALCIFEROL [Concomitant]
     Active Substance: CHOLECALCIFEROL
  13. LOXAPINE. [Concomitant]
     Active Substance: LOXAPINE

REACTIONS (5)
  - Dizziness [None]
  - Confusional state [None]
  - Upper gastrointestinal haemorrhage [None]
  - Vertigo [None]
  - Melaena [None]

NARRATIVE: CASE EVENT DATE: 20170813
